FAERS Safety Report 5302151-6 (Version None)
Quarter: 2007Q2

REPORT INFORMATION
  Report Type: 
  Country: None (occurrence: None)
  Receive Date: 20070419
  Receipt Date: 20070406
  Transmission Date: 20071010
  Serious: Yes (Other)
  Sender: FDA-Public Use
  Company Number: US-PFIZER INC-2007028334

PATIENT
  Sex: Female

DRUGS (7)
  1. ZYRTEC [Suspect]
     Indication: HYPERSENSITIVITY
     Dosage: FREQ:FREQUENCY: PRN
  2. CHANTIX [Concomitant]
     Indication: SMOKING CESSATION THERAPY
  3. TRILEPTAL [Concomitant]
  4. ZOLOFT [Concomitant]
  5. PREVACID [Concomitant]
  6. TRAMADOL HCL [Concomitant]
  7. ALL OTHER THERAPEUTIC PRODUCTS [Concomitant]

REACTIONS (6)
  - AMNESIA [None]
  - DRUG INEFFECTIVE [None]
  - HYPERSENSITIVITY [None]
  - PAIN [None]
  - SOMNOLENCE [None]
  - TREATMENT NONCOMPLIANCE [None]
